FAERS Safety Report 5508539-2 (Version None)
Quarter: 2007Q4

REPORT INFORMATION
  Report Type: 
  Country: None (occurrence: None)
  Receive Date: 20071031
  Receipt Date: 20070707
  Transmission Date: 20080405
  Serious: No
  Sender: FDA-Public Use
  Company Number: 2007PV033104

PATIENT
  Age: 58 Year
  Sex: Male
  Weight: 106.1417 kg

DRUGS (5)
  1. SYMLIN [Suspect]
     Indication: TYPE 2 DIABETES MELLITUS
     Dosage: 30 MCG;BID;SC ; 30 MCG;QPM;SC ; 15 MCG;QPM;SC
     Route: 058
     Dates: start: 20070611, end: 20070619
  2. SYMLIN [Suspect]
     Indication: TYPE 2 DIABETES MELLITUS
     Dosage: 30 MCG;BID;SC ; 30 MCG;QPM;SC ; 15 MCG;QPM;SC
     Route: 058
     Dates: start: 20070619, end: 20070627
  3. SYMLIN [Suspect]
     Indication: TYPE 2 DIABETES MELLITUS
     Dosage: 30 MCG;BID;SC ; 30 MCG;QPM;SC ; 15 MCG;QPM;SC
     Route: 058
     Dates: start: 20070627
  4. NOVOLOG [Concomitant]
  5. COUMADIN [Concomitant]

REACTIONS (3)
  - EARLY SATIETY [None]
  - INJECTION SITE BRUISING [None]
  - NAUSEA [None]
